FAERS Safety Report 12122197 (Version 2)
Quarter: 2016Q2

REPORT INFORMATION
  Report Type: Report from Study
  Country: ZA (occurrence: ZA)
  Receive Date: 20160226
  Receipt Date: 20160513
  Transmission Date: 20160815
  Serious: Yes (Other)
  Sender: FDA-Public Use
  Company Number: ZA-REGENERON PHARMACEUTICALS, INC.-2016-12763

PATIENT

DRUGS (5)
  1. EYLEA [Suspect]
     Active Substance: AFLIBERCEPT
     Dosage: 0.04 ML, ONCE (TOTAL OF 5 INJECTIONS)
     Route: 031
     Dates: start: 20160121, end: 20160121
  2. EYLEA [Suspect]
     Active Substance: AFLIBERCEPT
     Indication: MACULAR DEGENERATION
     Dosage: 0.04 ML MILLILITRE(S), ONCE
     Route: 031
     Dates: start: 20150805, end: 201508
  3. EYLEA [Suspect]
     Active Substance: AFLIBERCEPT
     Dosage: 0.04 ML, ONCE
     Route: 031
     Dates: start: 201509, end: 201509
  4. EYLEA [Suspect]
     Active Substance: AFLIBERCEPT
     Dosage: 0.04 ML, ONCE
     Route: 031
     Dates: start: 201512, end: 201512
  5. EYLEA [Suspect]
     Active Substance: AFLIBERCEPT
     Dosage: 0.04 ML, ONCE
     Route: 031
     Dates: start: 201510, end: 201510

REACTIONS (2)
  - Drug ineffective [Unknown]
  - Retinal oedema [Unknown]
